FAERS Safety Report 5036888-3 (Version None)
Quarter: 2006Q2

REPORT INFORMATION
  Report Type: 
  Country: None (occurrence: None)
  Receive Date: 20060628
  Receipt Date: 20060619
  Transmission Date: 20061013
  Serious: Yes (Hospitalization)
  Sender: FDA-Public Use
  Company Number: FR-AVENTIS-200612234FR

PATIENT
  Age: 83 Year
  Sex: Male

DRUGS (5)
  1. RIFADIN [Suspect]
     Indication: LEGIONELLA INFECTION
     Route: 042
     Dates: start: 20060322, end: 20060323
  2. CORDARONE [Concomitant]
     Indication: ARRHYTHMIA
     Route: 048
  3. VIT K ANTAGONISTS [Concomitant]
     Indication: ARRHYTHMIA
     Route: 048
  4. TENORMIN [Concomitant]
     Indication: MYOCARDIAL ISCHAEMIA
     Route: 048
  5. COVERSYL [Concomitant]
     Indication: MYOCARDIAL ISCHAEMIA
     Route: 048

REACTIONS (1)
  - ANAEMIA [None]
